FAERS Safety Report 8453903-5 (Version None)
Quarter: 2012Q2

REPORT INFORMATION
  Report Type: 
  Country: None (occurrence: None)
  Receive Date: 20120620
  Receipt Date: 20120611
  Transmission Date: 20120825
  Serious: Yes (Other)
  Sender: FDA-Public Use
  Company Number: US-ABBOTT-12P-163-0920637-00

PATIENT
  Age: 40 Year
  Sex: Female

DRUGS (3)
  1. MACRODANTIN [Concomitant]
     Indication: PRODUCT USED FOR UNKNOWN INDICATION
  2. KALETRA [Suspect]
     Indication: ANTIVIRAL TREATMENT
     Dosage: 4 TABS DAILY
     Route: 048
     Dates: start: 20100819
  3. COMBIVIR [Suspect]
     Indication: ANTIVIRAL TREATMENT
     Dosage: 2 TABLETS DAILY
     Route: 048
     Dates: start: 20100819

REACTIONS (1)
  - PREMATURE DELIVERY [None]
